FAERS Safety Report 6506083-7 (Version None)
Quarter: 2009Q4

REPORT INFORMATION
  Report Type: 
  Country: None (occurrence: None)
  Receive Date: 20091218
  Receipt Date: 20091211
  Transmission Date: 20100525
  Serious: Yes (Other)
  Sender: FDA-Public Use
  Company Number: US-JNJFOC-20091204335

PATIENT
  Age: 7 Week
  Sex: Male
  Weight: 5.44 kg

DRUGS (2)
  1. INFANTS' MYLICON NON-STAINING FORMULA [Suspect]
     Indication: FLATULENCE
     Dosage: 20MG 4-5 TIMES PER DAY FOR SEVERAL DAYS
     Route: 048
  2. INFANTS' MYLICON NON-STAINING FORMULA [Suspect]
     Route: 048

REACTIONS (2)
  - ABNORMAL FAECES [None]
  - HAEMATOCHEZIA [None]
